FAERS Safety Report 24792383 (Version 1)
Quarter: 2024Q4

REPORT INFORMATION
  Report Type: Report from Study
  Country: US (occurrence: US)
  Receive Date: 20241231
  Receipt Date: 20241231
  Transmission Date: 20250115
  Serious: Yes (Hospitalization)
  Sender: ABBVIE
  Company Number: US-ABBVIE-6067065

PATIENT
  Age: 81 Year
  Sex: Female

DRUGS (2)
  1. SKYRIZI [Suspect]
     Active Substance: RISANKIZUMAB-RZAA
     Indication: Crohn^s disease
     Route: 058
     Dates: start: 20240426
  2. INSULIN NOS [Concomitant]
     Active Substance: INSULIN NOS
     Indication: Steroid diabetes
     Dates: start: 20241225

REACTIONS (2)
  - Intestinal obstruction [Recovering/Resolving]
  - Adverse drug reaction [Unknown]

NARRATIVE: CASE EVENT DATE: 20240101
